FAERS Safety Report 24939964 (Version 1)
Quarter: 2025Q1

REPORT INFORMATION
  Report Type: Spontaneous
  Country: US (occurrence: US)
  Receive Date: 20250207
  Receipt Date: 20250207
  Transmission Date: 20250409
  Serious: No
  Sender: STALLERGENES
  Company Number: US-STALCOR-2025-AER-00214

PATIENT
  Age: 4 Year
  Sex: Male
  Weight: 23.3 kg

DRUGS (1)
  1. PALFORZIA [Suspect]
     Active Substance: PEANUT
     Indication: Food allergy
     Dosage: INITIAL IN OFFICE DOSE (0.5-6MG). THE DOSES OF 0.5MG, 1MG AND 3MG WERE ADMINISTERED AND THEN DRUG WA
     Route: 048
     Dates: start: 20250108, end: 20250108

REACTIONS (1)
  - Vomiting [Recovered/Resolved]

NARRATIVE: CASE EVENT DATE: 20250108
